FAERS Safety Report 14624120 (Version 1)
Quarter: 2018Q1

REPORT INFORMATION
  Report Type: Spontaneous
  Country: US (occurrence: US)
  Receive Date: 20180312
  Receipt Date: 20180312
  Transmission Date: 20180509
  Serious: Yes (Other)
  Sender: FDA-Public Use
  Company Number: US-INDICUS PHARMA-000507

PATIENT
  Age: 45 Year
  Sex: Male

DRUGS (7)
  1. LISINOPRIL. [Concomitant]
     Active Substance: LISINOPRIL
     Dosage: 10 MG DAILY
  2. PRAZOSIN. [Concomitant]
     Active Substance: PRAZOSIN
     Dosage: 5 MG NIGHTLY
  3. TRAZODONE [Suspect]
     Active Substance: TRAZODONE HYDROCHLORIDE
     Indication: INSOMNIA
     Dosage: 3 TABLETS OF TRAZODONE 100 MG NIGHTLY
  4. METFORMIN [Suspect]
     Active Substance: METFORMIN HYDROCHLORIDE
     Indication: PRODUCT USED FOR UNKNOWN INDICATION
     Dosage: 3 TABLETS, 1000 MG NIGHTLY
  5. LURASIDONE [Concomitant]
     Active Substance: LURASIDONE
     Dosage: 120 MG NIGHTLY
  6. VALPROIC ACID. [Concomitant]
     Active Substance: VALPROIC ACID
     Dosage: VALPROATE 500 MG ER NIGHTLY
  7. MIRTAZAPINE. [Concomitant]
     Active Substance: MIRTAZAPINE
     Dosage: 30 MG NIGHTLY

REACTIONS (3)
  - Lactic acidosis [Recovered/Resolved]
  - Accidental overdose [Unknown]
  - Metabolic acidosis [Recovered/Resolved]
